FAERS Safety Report 11129470 (Version 2)
Quarter: 2015Q2

REPORT INFORMATION
  Report Type: Spontaneous
  Country: US (occurrence: US)
  Receive Date: 20150521
  Receipt Date: 20150619
  Transmission Date: 20150821
  Serious: Yes (Other)
  Sender: FDA-Public Use
  Company Number: US-MALLINCKRODT-T201502532

PATIENT
  Age: 27 Year
  Sex: Female

DRUGS (3)
  1. GABLOFEN [Suspect]
     Active Substance: BACLOFEN
     Dosage: 1030 MCG/DAY FLEX DOSE (BASAL RATE 41 MCG/HR)
     Route: 037
     Dates: start: 201412
  2. GABLOFEN [Suspect]
     Active Substance: BACLOFEN
     Indication: MUSCLE SPASTICITY
     Dosage: 940 MCG/DAY FLEX DOSE (35 MCG/HR BASAL RATE)
     Route: 037
     Dates: end: 201412
  3. GABLOFEN [Suspect]
     Active Substance: BACLOFEN
     Dosage: 940 MCG/DAY FLEX DOSE
     Route: 037

REACTIONS (2)
  - Incorrect dose administered [Recovered/Resolved]
  - Acute psychosis [Recovered/Resolved]

NARRATIVE: CASE EVENT DATE: 201412
